FAERS Safety Report 6316339-9 (Version None)
Quarter: 2009Q3

REPORT INFORMATION
  Report Type: 
  Country: None (occurrence: None)
  Receive Date: 20090820
  Receipt Date: 20090811
  Transmission Date: 20100115
  Serious: Yes (Hospitalization)
  Sender: FDA-Public Use
  Company Number: A0801616A

PATIENT
  Age: 59 Year
  Sex: Male

DRUGS (10)
  1. AVANDIA [Suspect]
     Indication: TYPE 2 DIABETES MELLITUS
     Dosage: 8MG PER DAY
     Route: 048
     Dates: start: 19990801, end: 20040422
  2. AVANDAMET [Suspect]
     Indication: TYPE 2 DIABETES MELLITUS
     Route: 048
     Dates: start: 20040422, end: 20050421
  3. ATENOLOL [Concomitant]
  4. CRESTOR [Concomitant]
  5. LORCET-HD [Concomitant]
  6. BACTRIM DS [Concomitant]
  7. FEOSOL [Concomitant]
  8. LEVITRA [Concomitant]
  9. GLUCOTROL XL [Concomitant]
  10. WELLBUTRIN [Concomitant]

REACTIONS (29)
  - AORTIC ARTERIOSCLEROSIS [None]
  - AORTIC VALVE INCOMPETENCE [None]
  - ARTERIOSCLEROSIS CORONARY ARTERY [None]
  - ASTHENIA [None]
  - ATRIAL TACHYCARDIA [None]
  - BUNDLE BRANCH BLOCK RIGHT [None]
  - CORONARY ARTERY DISEASE [None]
  - CORONARY ARTERY EMBOLISM [None]
  - CORONARY ARTERY STENOSIS [None]
  - CORONARY ARTERY THROMBOSIS [None]
  - EMOTIONAL DISTRESS [None]
  - FATIGUE [None]
  - HYPERTRIGLYCERIDAEMIA [None]
  - LEFT VENTRICULAR HYPERTROPHY [None]
  - LIFE EXPECTANCY SHORTENED [None]
  - MITRAL VALVE INCOMPETENCE [None]
  - MUSCULAR DYSTROPHY [None]
  - MYOCARDIAL INFARCTION [None]
  - OEDEMA [None]
  - OVERWEIGHT [None]
  - PAIN [None]
  - PERIPHERAL VASCULAR DISORDER [None]
  - QUALITY OF LIFE DECREASED [None]
  - RENAL ARTERY ARTERIOSCLEROSIS [None]
  - SINUS BRADYCARDIA [None]
  - TRICUSPID VALVE INCOMPETENCE [None]
  - UNEVALUABLE EVENT [None]
  - VENTRICULAR TACHYCARDIA [None]
  - WEIGHT INCREASED [None]
